FAERS Safety Report 6848203-0 (Version None)
Quarter: 2010Q3

REPORT INFORMATION
  Report Type: 
  Country: None (occurrence: None)
  Receive Date: 20100716
  Receipt Date: 20100708
  Transmission Date: 20110219
  Serious: Yes (Hospitalization)
  Sender: FDA-Public Use
  Company Number: B0665493A

PATIENT
  Age: 80 Year
  Sex: Female

DRUGS (1)
  1. AMOXICILLIN AND CLAVULANATE POTASSIUM [Suspect]
     Indication: TRACHEOBRONCHITIS
     Dosage: 875G PER DAY
     Route: 048
     Dates: start: 20100607, end: 20100607

REACTIONS (2)
  - CLOSTRIDIUM DIFFICILE COLITIS [None]
  - COLITIS [None]
